FAERS Safety Report 4577006-5 (Version None)
Quarter: 2005Q1

REPORT INFORMATION
  Report Type: 
  Country: None (occurrence: None)
  Receive Date: 20050208
  Receipt Date: 20050126
  Transmission Date: 20050727
  Serious: Yes (Hospitalization, Other)
  Sender: FDA-Public Use
  Company Number: 2005022975

PATIENT
  Age: 55 Year
  Sex: Male
  Weight: 131.5431 kg

DRUGS (1)
  1. CELEBREX [Suspect]
     Indication: INTERVERTEBRAL DISC PROTRUSION
     Dosage: 400 MG (200 MG, 2 IN 1 D), ORAL
     Route: 048
     Dates: start: 19980101, end: 20040901

REACTIONS (4)
  - AORTIC VALVE DISEASE [None]
  - MYOCARDIAL INFARCTION [None]
  - NEPHRECTOMY [None]
  - RENAL DISORDER [None]
